FAERS Safety Report 8560613-2 (Version None)
Quarter: 2012Q3

REPORT INFORMATION
  Report Type: 
  Country: None (occurrence: None)
  Receive Date: 20120802
  Receipt Date: 20120724
  Transmission Date: 20120928
  Serious: Yes (Other)
  Sender: FDA-Public Use
  Company Number: US-ASTRAZENECA-2012SE52587

PATIENT
  Age: 74 Year
  Sex: Female

DRUGS (1)
  1. NEXIUM [Suspect]
     Route: 048

REACTIONS (5)
  - OSTEOMYELITIS [None]
  - PHARYNGEAL ABSCESS [None]
  - HYPOACUSIS [None]
  - NEOPLASM MALIGNANT [None]
  - PRECANCEROUS MUCOSAL LESION [None]
